FAERS Safety Report 6866369-3 (Version None)
Quarter: 2010Q3

REPORT INFORMATION
  Report Type: 
  Country: None (occurrence: None)
  Receive Date: 20100722
  Receipt Date: 20100712
  Transmission Date: 20110219
  Serious: Yes (Other)
  Sender: FDA-Public Use
  Company Number: PHHY2010US40477

PATIENT
  Sex: Female

DRUGS (11)
  1. EXELON [Suspect]
     Dosage: 4.6 MG, UNK
     Route: 062
  2. EXELON [Suspect]
     Dosage: 9.5 MG, UNK
     Route: 062
  3. BIOFREEZE [Suspect]
     Indication: PAIN
     Dosage: UNK
  4. PAROXETINE HCL [Concomitant]
     Dosage: UNK
  5. LEVOTHYROXINE SODIUM [Concomitant]
     Dosage: UNK
  6. HYDROCHLOROTHIAZIDE [Concomitant]
     Dosage: UNK
  7. LANOXIN [Concomitant]
     Dosage: UNK
  8. METOPROLOL [Concomitant]
     Dosage: 50 MG, UNK
  9. ARICEPT [Concomitant]
     Dosage: UNK
  10. MELATONIN [Concomitant]
     Dosage: UNK
  11. VITAMINS WITH MINERALS [Concomitant]
     Dosage: UNK

REACTIONS (6)
  - APPLICATION SITE ERYTHEMA [None]
  - APPLICATION SITE IRRITATION [None]
  - APPLICATION SITE PRURITUS [None]
  - FALL [None]
  - JOINT INJURY [None]
  - NECK INJURY [None]
